FAERS Safety Report 8313755-0 (Version None)
Quarter: 2012Q2

REPORT INFORMATION
  Report Type: 
  Country: None (occurrence: None)
  Receive Date: 20120426
  Receipt Date: 20110808
  Transmission Date: 20120825
  Serious: Yes (Other)
  Sender: FDA-Public Use
  Company Number: US-TEVA-US019879

PATIENT
  Sex: Male

DRUGS (2)
  1. KLONOPIN [Concomitant]
     Indication: DEPRESSION
     Dosage: 4 MILLIGRAM;
     Route: 048
  2. PROVIGIL [Suspect]
     Indication: BIPOLAR DISORDER
     Dosage: 400 MILLIGRAM;
     Route: 048

REACTIONS (1)
  - DISORIENTATION [None]
